FAERS Safety Report 14103297 (Version 2)
Quarter: 2018Q3

REPORT INFORMATION
  Report Type: Spontaneous
  Country: US (occurrence: US)
  Receive Date: 20171018
  Receipt Date: 20180719
  Transmission Date: 20181010
  Serious: Yes (Other)
  Sender: FDA-Public Use
  Company Number: US-PFIZER INC-2017446518

PATIENT
  Age: 78 Year
  Sex: Female
  Weight: 68.4 kg

DRUGS (1)
  1. METHOTREXATE SODIUM. [Suspect]
     Active Substance: METHOTREXATE SODIUM
     Indication: ARTHRITIS
     Dosage: UNK
     Dates: start: 1997

REACTIONS (5)
  - Oropharyngeal blistering [Recovered/Resolved]
  - Amnesia [Unknown]
  - Dysphagia [Recovered/Resolved]
  - Oral mucosal blistering [Recovered/Resolved]
  - Dyspnoea [Recovered/Resolved]
